FAERS Safety Report 22925529 (Version 2)
Quarter: 2023Q4

REPORT INFORMATION
  Report Type: Report from Study
  Country: DE (occurrence: DE)
  Receive Date: 20230908
  Receipt Date: 20231028
  Transmission Date: 20240110
  Serious: Yes (Other)
  Sender: FDA-Public Use
  Company Number: DE-TEVA-2023-DE-2923779

PATIENT
  Age: 40 Year
  Sex: Female
  Weight: 73 kg

DRUGS (1)
  1. COPAXONE [Suspect]
     Active Substance: GLATIRAMER ACETATE
     Indication: Multiple sclerosis
     Dosage: 20 MILLIGRAM DAILY;
     Dates: start: 202002

REACTIONS (1)
  - Melanocytic naevus [Unknown]

NARRATIVE: CASE EVENT DATE: 20230101
